FAERS Safety Report 7813865-8 (Version None)
Quarter: 2011Q4

REPORT INFORMATION
  Report Type: 
  Country: None (occurrence: None)
  Receive Date: 20111014
  Receipt Date: 20111004
  Transmission Date: 20120403
  Serious: Yes (Hospitalization)
  Sender: FDA-Public Use
  Company Number: FI-JNJFOC-20110507584

PATIENT
  Sex: Female

DRUGS (5)
  1. REMICADE [Suspect]
     Indication: PUSTULAR PSORIASIS
     Dosage: 6TH INFUSION
     Route: 042
     Dates: start: 20110131
  2. REMICADE [Suspect]
     Route: 042
     Dates: start: 20100701
  3. METHOTREXATE [Concomitant]
  4. THYROXIN [Concomitant]
  5. FOLIC ACID [Concomitant]

REACTIONS (4)
  - PULMONARY OEDEMA [None]
  - LUPUS-LIKE SYNDROME [None]
  - JOINT EFFUSION [None]
  - PERICARDIAL EFFUSION [None]
